FAERS Safety Report 10094789 (Version 2)
Quarter: 2014Q2

REPORT INFORMATION
  Report Type: Spontaneous
  Country: US (occurrence: US)
  Receive Date: 20140422
  Receipt Date: 20140513
  Transmission Date: 20141212
  Serious: No
  Sender: FDA-Public Use
  Company Number: US-TEVA-477201USA

PATIENT
  Age: 22 Year
  Sex: Female
  Weight: 67.19 kg

DRUGS (4)
  1. PLAN B ONE-STEP [Suspect]
     Indication: POST COITAL CONTRACEPTION
     Dosage: 1.5 MILLIGRAM DAILY;
     Route: 048
     Dates: start: 20140308, end: 20140308
  2. PLAN B ONE-STEP [Suspect]
     Dosage: 1.5 MILLIGRAM DAILY;
     Route: 048
     Dates: start: 20140315, end: 20140315
  3. ORTHO TRI-CYCLEN LO [Concomitant]
     Indication: CONTRACEPTION
  4. SPIRONOLACTONE [Concomitant]
     Indication: ACNE

REACTIONS (1)
  - Menstruation irregular [Recovered/Resolved]
